FAERS Safety Report 9298239 (Version 1)
Quarter: 2013Q2

REPORT INFORMATION
  Report Type: Spontaneous
  Country: US (occurrence: US)
  Receive Date: 20130520
  Receipt Date: 20130520
  Transmission Date: 20140414
  Serious: No
  Sender: FDA-Public Use
  Company Number: US-PFIZER INC-2013154251

PATIENT
  Age: 53 Year
  Sex: Male
  Weight: 111 kg

DRUGS (13)
  1. LYRICA [Suspect]
     Indication: HYPOAESTHESIA
     Dosage: 75 MG, 2X/DAY
     Route: 048
     Dates: start: 201305, end: 20130514
  2. LYRICA [Suspect]
     Indication: PAIN IN EXTREMITY
  3. HYDROCODONE W/ACETAMINOPHEN [Suspect]
     Indication: SPINAL PAIN
     Dosage: 10/325 MG, 1X/DAY
     Route: 048
  4. TAMSULOSIN [Concomitant]
     Dosage: 0.4 MG, 1X/DAY
     Route: 048
  5. METHADONE [Concomitant]
     Indication: SPINAL PAIN
     Dosage: 150 MG, 3X/DAY
     Route: 048
  6. METHADONE [Concomitant]
     Indication: PAIN IN EXTREMITY
  7. MAGNESIUM OXIDE [Concomitant]
     Indication: CARDIAC DISORDER
     Dosage: 400 MG, 2X/DAY
     Route: 048
  8. XARELTO [Concomitant]
     Indication: ANTICOAGULANT THERAPY
     Dosage: 20 MG, 1X/DAY
     Route: 048
  9. LIVALO [Concomitant]
     Dosage: 4 MG, 1X/DAY
     Route: 048
  10. FENOFIBRATE [Concomitant]
     Dosage: 134 MG, 1X/DAY
     Route: 048
  11. AMITRIPTYLINE [Concomitant]
     Indication: SLEEP DISORDER
     Dosage: 500 MG, 1X/DAY AT BED TIME
     Route: 048
  12. ALPRAZOLAM [Concomitant]
     Dosage: 0.5 MG, AS NEEDED
     Route: 048
  13. CARVEDILOL [Concomitant]
     Dosage: 12.5 MG, 2X/DAY
     Route: 048

REACTIONS (2)
  - Feeling abnormal [Recovered/Resolved]
  - Constipation [Unknown]
